FAERS Safety Report 7890543-0 (Version None)
Quarter: 2011Q4

REPORT INFORMATION
  Report Type: 
  Country: None (occurrence: None)
  Receive Date: 20111103
  Receipt Date: 20110720
  Transmission Date: 20120403
  Serious: No
  Sender: FDA-Public Use
  Company Number: US-AMGEN-USASP2011037008

PATIENT
  Age: 41 Year
  Sex: Female

DRUGS (2)
  1. ENBREL [Suspect]
     Indication: RHEUMATOID ARTHRITIS
     Dosage: 50 MG, QWK
     Dates: start: 20090301
  2. TREXALL [Concomitant]
     Dosage: UNK

REACTIONS (6)
  - BODY TEMPERATURE INCREASED [None]
  - NAUSEA [None]
  - PAIN [None]
  - CHILLS [None]
  - INFLUENZA [None]
  - HEADACHE [None]
